FAERS Safety Report 6922746-3 (Version None)
Quarter: 2010Q3

REPORT INFORMATION
  Report Type: 
  Country: None (occurrence: None)
  Receive Date: 20100813
  Receipt Date: 20100804
  Transmission Date: 20110219
  Serious: Yes (Hospitalization)
  Sender: FDA-Public Use
  Company Number: US-ASTRAZENECA-2010SE36663

PATIENT
  Age: 52 Year
  Sex: Female

DRUGS (11)
  1. SEROQUEL XR [Suspect]
     Route: 048
  2. SEROQUEL XR [Suspect]
     Route: 048
  3. NEXIUM [Concomitant]
     Route: 048
  4. LORAZEPAM [Concomitant]
  5. SPIRONOLACTONE [Concomitant]
  6. METHADONE HCL [Concomitant]
  7. COUMADIN [Concomitant]
  8. PLAVIX [Concomitant]
  9. ASPIRIN [Concomitant]
  10. HYDROXYUREA [Concomitant]
  11. PROZAC [Concomitant]

REACTIONS (3)
  - DIABETES MELLITUS [None]
  - HYPERGLYCAEMIA [None]
  - INCORRECT DOSE ADMINISTERED [None]
